FAERS Safety Report 9097854 (Version 1)
Quarter: 2013Q1

REPORT INFORMATION
  Report Type: Spontaneous
  Country: US (occurrence: US)
  Receive Date: 20130212
  Receipt Date: 20130212
  Transmission Date: 20140127
  Serious: Yes (Hospitalization)
  Sender: FDA-Public Use
  Company Number: US-009507513-1302USA001559

PATIENT
  Age: 34 Year
  Sex: Male

DRUGS (5)
  1. LISINOPRIL [Suspect]
     Dosage: 5 MG, QD
     Route: 048
  2. DEXAMETHASONE [Concomitant]
     Dosage: 4 MG, BID
     Route: 048
  3. DEXAMETHASONE [Concomitant]
     Dosage: 4 MG, QID
     Route: 048
  4. LEVETIRACETAM [Concomitant]
     Dosage: 2000 MG, BID
     Route: 048
  5. ACETAMINOPHEN [Concomitant]

REACTIONS (1)
  - Angioedema [Recovering/Resolving]
